FAERS Safety Report 18841847 (Version 12)
Quarter: 2021Q4

REPORT INFORMATION
  Report Type: Report from Study
  Country: JP (occurrence: None)
  Receive Date: 20210203
  Receipt Date: 20211207
  Transmission Date: 20220303
  Serious: Yes (Hospitalization)
  Sender: FDA-Public Use
  Company Number: JP-EISAI MEDICAL RESEARCH-EC-2021-087422

PATIENT
  Age: 59 Year
  Sex: Male
  Weight: 57.7 kg

DRUGS (29)
  1. LENVATINIB [Suspect]
     Active Substance: LENVATINIB
     Indication: Non-small cell lung cancer metastatic
     Dosage: STARTING DOSE AT 20MG, FROM 15-DEC-2020, RESUME AT 10 MG/DAY, FLUCTUATED DOSAGE,
     Route: 048
     Dates: start: 20200925, end: 20210102
  2. LENVATINIB [Suspect]
     Active Substance: LENVATINIB
     Route: 048
     Dates: start: 20210103, end: 20210103
  3. PEMBROLIZUMAB [Suspect]
     Active Substance: PEMBROLIZUMAB
     Indication: Non-small cell lung cancer metastatic
     Route: 041
     Dates: start: 20200925, end: 20201218
  4. PEMBROLIZUMAB [Suspect]
     Active Substance: PEMBROLIZUMAB
     Route: 041
     Dates: start: 20210108, end: 20210108
  5. PEMBROLIZUMAB [Suspect]
     Active Substance: PEMBROLIZUMAB
     Route: 041
     Dates: start: 20210312, end: 20210312
  6. PEMBROLIZUMAB [Suspect]
     Active Substance: PEMBROLIZUMAB
     Route: 041
     Dates: start: 20210402
  7. CALONAL [Concomitant]
     Active Substance: ACETAMINOPHEN
     Dates: start: 20200811
  8. CALONAL [Concomitant]
     Active Substance: ACETAMINOPHEN
     Dates: start: 20201204
  9. LYRICA [Concomitant]
     Active Substance: PREGABALIN
     Dates: start: 20200814
  10. LUNESTA [Concomitant]
     Active Substance: ESZOPICLONE
     Dates: start: 20200814
  11. SENNOSIDES [Concomitant]
     Active Substance: SENNOSIDES
     Dates: start: 20200817
  12. RABEPRAZOLE SODIUM [Concomitant]
     Active Substance: RABEPRAZOLE SODIUM
     Dates: start: 20200817
  13. SYMPROIC [Concomitant]
     Active Substance: NALDEMEDINE
     Dates: start: 20200819
  14. CELECOXIB [Concomitant]
     Active Substance: CELECOXIB
     Dates: start: 20200819
  15. MAGNESIUM OXIDE [Concomitant]
     Active Substance: MAGNESIUM OXIDE
     Dates: start: 20200821
  16. CALCIUM CARBONATE\CHOLECALCIFEROL\MAGNESIUM CARBONATE [Concomitant]
     Active Substance: CALCIUM CARBONATE\CHOLECALCIFEROL\MAGNESIUM CARBONATE
     Dates: start: 20200825
  17. TENELIGLIPTIN [Concomitant]
     Active Substance: TENELIGLIPTIN
     Dates: start: 20200926
  18. BETAMETHASONE BUTYRATE PROPIONATE [Concomitant]
     Active Substance: BETAMETHASONE BUTYRATE PROPIONATE
     Dates: start: 20201009
  19. CLOBETASOL PROPIONATE [Concomitant]
     Active Substance: CLOBETASOL PROPIONATE
     Dates: start: 20201029
  20. ZINC OXIDE [Concomitant]
     Active Substance: ZINC OXIDE
     Dates: start: 20201029
  21. ZOLPIDEM TARTRATE [Concomitant]
     Active Substance: ZOLPIDEM TARTRATE
     Dates: start: 20201111
  22. AZ [Concomitant]
     Dosage: RINSE
     Dates: start: 20201118
  23. GLYCERIN [Concomitant]
     Active Substance: GLYCERIN
     Dosage: RINSE
     Dates: start: 20201118
  24. HYDROMORPHONE HYDROCHLORIDE [Concomitant]
     Active Substance: HYDROMORPHONE HYDROCHLORIDE
     Dates: start: 20201209
  25. SODIUM FERROUS CITRATE [Concomitant]
     Active Substance: SODIUM FERROUS CITRATE
     Dates: start: 20201210
  26. HYDROMORPHONE HYDROCHLORIDE [Concomitant]
     Active Substance: HYDROMORPHONE HYDROCHLORIDE
     Dates: start: 20201214
  27. DECADRON [Concomitant]
     Active Substance: DEXAMETHASONE
     Dates: start: 20210111, end: 20210114
  28. BILASTINE [Concomitant]
     Active Substance: BILASTINE
     Dates: start: 20210119
  29. CHONDROITIN SULFATE (BOVINE) [Concomitant]
     Active Substance: CHONDROITIN SULFATE (BOVINE)
     Dates: start: 20201009

REACTIONS (2)
  - Pneumonitis [Recovering/Resolving]
  - Pneumonia bacterial [Recovered/Resolved]

NARRATIVE: CASE EVENT DATE: 20210126
